FAERS Safety Report 23249246 (Version 2)
Quarter: 2024Q1

REPORT INFORMATION
  Report Type: Spontaneous
  Country: NO (occurrence: NO)
  Receive Date: 20231201
  Receipt Date: 20240110
  Transmission Date: 20240410
  Serious: Yes (Other)
  Sender: FDA-Public Use
  Company Number: NO-ROCHE-3375955

PATIENT
  Sex: Male

DRUGS (12)
  1. BENDAMUSTINE [Suspect]
     Active Substance: BENDAMUSTINE
     Indication: Diffuse large B-cell lymphoma
     Dosage: UNK,3RD SYSTEMIC TREATMENT, P-BR
     Route: 065
     Dates: start: 20230426, end: 20230426
  2. CYCLOPHOSPHAMIDE [Suspect]
     Active Substance: CYCLOPHOSPHAMIDE
     Indication: Diffuse large B-cell lymphoma
     Dosage: UNK,1ST LINE SYSTEMIC TREATMENT, R-CHOP, NO RESPONSE/STABLE DISEASE
     Route: 065
     Dates: start: 20230126, end: 20230310
  3. DOXORUBICIN HYDROCHLORIDE [Suspect]
     Active Substance: DOXORUBICIN HYDROCHLORIDE
     Indication: Diffuse large B-cell lymphoma
     Dosage: UNK,1ST LINE SYSTEMIC TREATMENT, R-CHOP, NO RESPONSE/STABLE DISEASE
     Route: 065
     Dates: start: 20230126, end: 20230310
  4. ETOPOSIDE [Suspect]
     Active Substance: ETOPOSIDE
     Indication: Diffuse large B-cell lymphoma
     Dosage: UNK,2ND SYSTEMIC TREATMENT, O-IME
     Route: 065
     Dates: start: 20230403, end: 20230425
  5. OBINUTUZUMAB [Suspect]
     Active Substance: OBINUTUZUMAB
     Indication: Diffuse large B-cell lymphoma
     Dosage: UNK,2ND SYSTEMIC TREATMENT, O-IME
     Route: 042
     Dates: start: 20230403, end: 20230425
  6. IFOSFAMIDE [Suspect]
     Active Substance: IFOSFAMIDE
     Indication: Diffuse large B-cell lymphoma
     Dosage: UNK,2ND SYSTEMIC TREATMENT, O-IME
     Route: 065
     Dates: start: 20230403, end: 20230425
  7. METHOTREXATE [Suspect]
     Active Substance: METHOTREXATE
     Indication: Diffuse large B-cell lymphoma
     Dosage: UNK,2ND SYSTEMIC TREATMENT, O-IME
     Route: 065
     Dates: start: 20230403, end: 20230425
  8. POLIVY [Suspect]
     Active Substance: POLATUZUMAB VEDOTIN-PIIQ
     Indication: Diffuse large B-cell lymphoma
     Dosage: UNK,3RD SYSTEMIC TREATMENT, P-BR
     Route: 065
     Dates: start: 20230426, end: 20230426
  9. PREDNISONE [Suspect]
     Active Substance: PREDNISONE
     Indication: Diffuse large B-cell lymphoma
     Dosage: UNK,1ST LINE SYSTEMIC TREATMENT, R-CHOP, NO RESPONSE/STABLE DISEASE
     Route: 065
     Dates: start: 20230126, end: 20230310
  10. RITUXIMAB [Suspect]
     Active Substance: RITUXIMAB
     Dosage: UNK,1ST LINE SYSTEMIC TREATMENT, R-CHOP, NO RESPONSE/STABLE DISEASE
     Route: 065
     Dates: start: 20230126, end: 20230310
  11. RITUXIMAB [Suspect]
     Active Substance: RITUXIMAB
     Indication: Diffuse large B-cell lymphoma
     Dosage: UNK,3RD SYSTEMIC TREATMENT, P-BR
     Route: 065
     Dates: start: 20230426, end: 20230426
  12. VINCRISTINE SULFATE [Suspect]
     Active Substance: VINCRISTINE SULFATE
     Indication: Diffuse large B-cell lymphoma
     Dosage: UNK,1ST LINE SYSTEMIC TREATMENT, R-CHOP, NO RESPONSE/STABLE DISEASE
     Route: 065
     Dates: start: 20230126, end: 20230310

REACTIONS (3)
  - Clostridial infection [Unknown]
  - Disease progression [Unknown]
  - Drug resistance [Unknown]
